FAERS Safety Report 16246171 (Version 1)
Quarter: 2019Q2

REPORT INFORMATION
  Report Type: Spontaneous
  Country: US (occurrence: US)
  Receive Date: 20190426
  Receipt Date: 20190426
  Transmission Date: 20190711
  Serious: Yes (Hospitalization, Other)
  Sender: FDA-Public Use
  Company Number: US-SHIRE-US201913098

PATIENT
  Sex: Male

DRUGS (2)
  1. CINRYZE [Suspect]
     Active Substance: HUMAN C1-ESTERASE INHIBITOR
     Indication: PRODUCT USED FOR UNKNOWN INDICATION
     Dosage: 1000 (UNIT UNK), 2X A WEEK
     Route: 050
     Dates: start: 20140806
  2. FIRAZYR [Suspect]
     Active Substance: ICATIBANT ACETATE
     Indication: PRODUCT USED FOR UNKNOWN INDICATION
     Dosage: 30 MILLIGRAM, AS REQ^D
     Route: 058
     Dates: start: 20130129

REACTIONS (4)
  - Lymphoma [Recovering/Resolving]
  - Hospitalisation [Recovering/Resolving]
  - Hereditary angioedema [Recovered/Resolved]
  - Loss of consciousness [Recovering/Resolving]
